FAERS Safety Report 7635675-7 (Version None)
Quarter: 2011Q3

REPORT INFORMATION
  Report Type: 
  Country: None (occurrence: None)
  Receive Date: 20110726
  Receipt Date: 20110719
  Transmission Date: 20111222
  Serious: Yes (Life-Threatening, Hospitalization, Other)
  Sender: FDA-Public Use
  Company Number: PHHY2011DE52834

PATIENT
  Age: 43 Year
  Sex: Female
  Weight: 68 kg

DRUGS (11)
  1. VOLTAREN [Suspect]
     Indication: ARTHRALGIA
     Dosage: 50 MG, 2-3 TABLETS WEEKLY
     Route: 048
     Dates: start: 19800101, end: 20110221
  2. VOLTAREN [Suspect]
     Indication: ABDOMINAL ADHESIONS
  3. LEVOTHYROXINE SODIUM [Concomitant]
     Dosage: 1 DF, UNK
     Route: 048
     Dates: start: 20040101
  4. AARANE N [Concomitant]
     Dosage: 2X2, PUF DAILY
     Route: 055
     Dates: start: 20000101
  5. METFORMIN HCL [Suspect]
     Dosage: 3 DF, DAILY
     Route: 048
     Dates: start: 20040101, end: 20110221
  6. METOPROLOL SUCCINATE [Concomitant]
     Dosage: 1 DF, DAILY
     Route: 048
     Dates: start: 20050101
  7. HYDROCHLOROTHIAZIDE [Concomitant]
     Dosage: 1 DF, DAILY
     Route: 048
     Dates: start: 20100101
  8. ZYPREXA [Concomitant]
     Dosage: 5 DF, DAILY
     Route: 048
     Dates: start: 20100201
  9. SERTRALINE HYDROCHLORIDE [Concomitant]
     Dosage: 1 DF, DAILY
     Route: 048
     Dates: start: 20101001
  10. OMEPRAZOLE [Concomitant]
     Dosage: 1 DF, DAILY
     Route: 048
     Dates: start: 19900101
  11. FERROUS SULFATE TAB [Concomitant]
     Dosage: 1 DF, UNK
     Route: 048
     Dates: start: 19800101

REACTIONS (6)
  - BLOOD UREA INCREASED [None]
  - BLOOD CREATININE INCREASED [None]
  - RENAL FAILURE ACUTE [None]
  - GLOMERULAR FILTRATION RATE DECREASED [None]
  - LACTIC ACIDOSIS [None]
  - BLOOD LACTIC ACID INCREASED [None]
